FAERS Safety Report 9407863 (Version 3)
Quarter: 2013Q3

REPORT INFORMATION
  Report Type: Spontaneous
  Country: CN (occurrence: CN)
  Receive Date: 20130718
  Receipt Date: 20130906
  Transmission Date: 20140515
  Serious: Yes (Other)
  Sender: FDA-Public Use
  Company Number: CN-ABBOTT-13X-035-1121728-00

PATIENT
  Age: 4 Year
  Sex: Male

DRUGS (4)
  1. DEPAKINE [Suspect]
     Indication: EPILEPSY
     Route: 048
     Dates: start: 201304, end: 20130711
  2. DEPAKINE [Suspect]
     Route: 048
     Dates: start: 20130618
  3. DEPAKINE [Suspect]
     Route: 048
     Dates: start: 20130723
  4. LEVOCARNITINE [Concomitant]
     Indication: PRODUCT USED FOR UNKNOWN INDICATION
     Dates: start: 201304

REACTIONS (6)
  - Fall [Recovered/Resolved]
  - Grand mal convulsion [Recovered/Resolved]
  - Epilepsy [Recovered/Resolved]
  - Dyskinesia [Recovered/Resolved]
  - Convulsion [Recovered/Resolved]
  - Gaze palsy [Recovered/Resolved]
